FAERS Safety Report 7635172-9 (Version None)
Quarter: 2011Q3

REPORT INFORMATION
  Report Type: 
  Country: None (occurrence: None)
  Receive Date: 20110718
  Receipt Date: 20110704
  Transmission Date: 20111222
  Serious: Yes (Other)
  Sender: FDA-Public Use
  Company Number: 2011SP006099

PATIENT
  Age: 18 Year
  Sex: Female
  Weight: 74.1 kg

DRUGS (6)
  1. IMPLANON [Suspect]
     Indication: CONTRACEPTION
     Dosage: 68 MG; ; SBDE
     Dates: start: 20100816, end: 20110114
  2. PROPOFOL [Concomitant]
  3. DOXYCYCLINE [Concomitant]
  4. METRONIDAZOLE [Concomitant]
  5. FENTANYL [Concomitant]
  6. DICLOFENAC SODIUM [Concomitant]

REACTIONS (2)
  - URTICARIA [None]
  - ANGIOEDEMA [None]
